FAERS Safety Report 11398208 (Version 2)
Quarter: 2015Q4

REPORT INFORMATION
  Report Type: Report from Study
  Country: US (occurrence: US)
  Receive Date: 20150820
  Receipt Date: 20151020
  Transmission Date: 20160304
  Serious: Yes (Other)
  Sender: FDA-Public Use
  Company Number: US-AMGEN-USASP2015083925

PATIENT
  Age: 81 Year
  Sex: Female

DRUGS (1)
  1. ENBREL [Suspect]
     Active Substance: ETANERCEPT
     Indication: RHEUMATOID ARTHRITIS
     Dosage: UNK UNK, QWK
     Route: 065
     Dates: start: 20130808, end: 2015

REACTIONS (4)
  - Pain [Unknown]
  - Knee operation [Recovered/Resolved]
  - Basal cell carcinoma [Unknown]
  - Toe amputation [Recovered/Resolved]

NARRATIVE: CASE EVENT DATE: 2015
